FAERS Safety Report 9340619 (Version 5)
Quarter: 2014Q1

REPORT INFORMATION
  Report Type: Spontaneous
  Country: US (occurrence: US)
  Receive Date: 20130610
  Receipt Date: 20140312
  Transmission Date: 20141002
  Serious: Yes (Other)
  Sender: FDA-Public Use
  Company Number: US-GLAXOSMITHKLINE-A0988176A

PATIENT
  Age: 52 Year
  Sex: Female
  Weight: 139.5 kg

DRUGS (2)
  1. AVANDIA [Suspect]
     Indication: DIABETES MELLITUS
     Dosage: 4MG PER DAY
     Route: 048
     Dates: start: 200306, end: 201001
  2. AVANDAMET [Suspect]
     Indication: DIABETES MELLITUS
     Route: 048
     Dates: start: 200407, end: 200511

REACTIONS (12)
  - Cardiac disorder [Not Recovered/Not Resolved]
  - Weight increased [Unknown]
  - Local swelling [Unknown]
  - Dyspnoea [Unknown]
  - Wheezing [Unknown]
  - Vision blurred [Unknown]
  - Back pain [Unknown]
  - Emotional distress [Unknown]
  - Asthenia [Unknown]
  - Renal injury [Unknown]
  - Abdominal distension [Unknown]
  - Cardiac failure congestive [Unknown]
